FAERS Safety Report 11239297 (Version 1)
Quarter: 2015Q3

REPORT INFORMATION
  Report Type: Spontaneous
  Country: US (occurrence: None)
  Receive Date: 20150701
  Receipt Date: 20150701
  Transmission Date: 20151125
  Serious: No
  Sender: FDA-Public Use
  Company Number: None

PATIENT
  Age: 80 Year
  Sex: Female
  Weight: 54.43 kg

DRUGS (5)
  1. LEVOTHYROXIN [Suspect]
     Active Substance: LEVOTHYROXINE
     Indication: THYROID DISORDER
     Dosage: 1 PILL BY MOUTH
     Route: 048
     Dates: start: 20150413, end: 20150512
  2. DIOVAN [Concomitant]
     Active Substance: VALSARTAN
  3. ARMOUR THYROID [Concomitant]
     Active Substance: THYROID, PORCINE\THYROID, UNSPECIFIED
  4. CLARITIN [Concomitant]
     Active Substance: LORATADINE
  5. CENTRUM SILVER [Concomitant]
     Active Substance: VITAMINS

REACTIONS (8)
  - Hot flush [None]
  - Hyperhidrosis [None]
  - Insomnia [None]
  - Muscle spasms [None]
  - Fatigue [None]
  - Psychomotor hyperactivity [None]
  - Nervousness [None]
  - Pain in extremity [None]

NARRATIVE: CASE EVENT DATE: 20150430
